FAERS Safety Report 11645512 (Version 1)
Quarter: 2015Q4

REPORT INFORMATION
  Report Type: Spontaneous
  Country: JP (occurrence: JP)
  Receive Date: 20151020
  Receipt Date: 20151020
  Transmission Date: 20160304
  Serious: Yes (Other)
  Sender: FDA-Public Use
  Company Number: JP-TEVA-601716ISR

PATIENT
  Age: 4 Decade
  Sex: Male

DRUGS (1)
  1. TRISENOX [Suspect]
     Active Substance: ARSENIC TRIOXIDE
     Dates: start: 20150804

REACTIONS (2)
  - Liver disorder [Recovering/Resolving]
  - Electrocardiogram QT prolonged [Recovering/Resolving]
